FAERS Safety Report 6119090-3 (Version None)
Quarter: 2009Q1

REPORT INFORMATION
  Report Type: 
  Country: None (occurrence: None)
  Receive Date: 20090316
  Receipt Date: 20090309
  Transmission Date: 20090719
  Serious: Yes (Other)
  Sender: FDA-Public Use
  Company Number: JP-JNJFOC-20090303367

PATIENT
  Sex: Female

DRUGS (4)
  1. CRAVIT [Suspect]
     Indication: ENTEROCOLITIS
     Route: 048
     Dates: start: 20090216, end: 20090220
  2. GASTER D [Concomitant]
     Indication: GASTRITIS
     Route: 048
  3. AMLODIN OD [Concomitant]
     Indication: HYPERTENSION
     Route: 048
  4. BLOPRESS [Concomitant]
     Indication: HYPERTENSION
     Route: 048

REACTIONS (1)
  - URINARY RETENTION [None]
